FAERS Safety Report 24185981 (Version 5)
Quarter: 2024Q4

REPORT INFORMATION
  Report Type: Spontaneous
  Country: JP (occurrence: JP)
  Receive Date: 20240807
  Receipt Date: 20241117
  Transmission Date: 20250115
  Serious: Yes (Hospitalization, Other)
  Sender: GLAXOSMITHKLINE
  Company Number: JP-GSKJP-JP2024JPN095927AA

PATIENT

DRUGS (12)
  1. DAPRODUSTAT [Suspect]
     Active Substance: DAPRODUSTAT
     Indication: Nephrogenic anaemia
     Dosage: 6 MG
     Route: 048
     Dates: start: 20240704, end: 20240711
  2. DAPRODUSTAT [Suspect]
     Active Substance: DAPRODUSTAT
     Dosage: UNK
     Dates: start: 20240801
  3. DARBEPOETIN ALFA [Suspect]
     Active Substance: DARBEPOETIN ALFA
     Indication: Nephrogenic anaemia
     Dosage: 30 UG
     Route: 058
     Dates: start: 20240730, end: 20240730
  4. ALLOPURINOL SODIUM [Concomitant]
     Active Substance: ALLOPURINOL SODIUM
     Dosage: 100 MG
     Route: 048
     Dates: start: 20240704, end: 20240711
  5. DISTIGMINE BROMIDE [Concomitant]
     Active Substance: DISTIGMINE BROMIDE
     Dosage: 5 MG
     Route: 048
     Dates: start: 20240704, end: 20240711
  6. SILODOSIN [Concomitant]
     Active Substance: SILODOSIN
     Dosage: 4 MG
     Route: 048
     Dates: start: 20240704, end: 20240711
  7. METHYLCOBALAMIN [Concomitant]
     Active Substance: METHYLCOBALAMIN
     Dosage: 0.5 MG
     Route: 048
     Dates: start: 20240704, end: 20240711
  8. SODIUM FERROUS CITRATE [Concomitant]
     Active Substance: SODIUM FERROUS CITRATE
     Dosage: 50 MG
     Route: 048
     Dates: start: 20240704, end: 20240711
  9. VIBEGRON [Concomitant]
     Active Substance: VIBEGRON
     Dosage: 50 MG
     Route: 048
     Dates: start: 20240704, end: 20240711
  10. TOVIAZ [Concomitant]
     Active Substance: FESOTERODINE FUMARATE
     Dosage: 4 MG
     Route: 048
     Dates: start: 20240704, end: 20240711
  11. TRIAZOLAM [Concomitant]
     Active Substance: TRIAZOLAM
     Dosage: 0.25 MG
     Route: 048
     Dates: start: 20240704, end: 20240711
  12. BROTIZOLAM [Concomitant]
     Active Substance: BROTIZOLAM
     Dosage: 0.25 MG
     Route: 048
     Dates: start: 20240704, end: 20240711

REACTIONS (4)
  - Pneumonia aspiration [Recovered/Resolved]
  - Anaemia [Unknown]
  - Dysphagia [Unknown]
  - Condition aggravated [Unknown]

NARRATIVE: CASE EVENT DATE: 20240712
